FAERS Safety Report 14148688 (Version 2)
Quarter: 2018Q1

REPORT INFORMATION
  Report Type: Spontaneous
  Country: FR (occurrence: FR)
  Receive Date: 20171101
  Receipt Date: 20180306
  Transmission Date: 20180508
  Serious: Yes (Hospitalization, Other)
  Sender: FDA-Public Use
  Company Number: FR-BAYER-2017-203638

PATIENT
  Age: 15 Year
  Sex: Male
  Weight: 115.5 kg

DRUGS (13)
  1. CYCLOSERINE. [Suspect]
     Active Substance: CYCLOSERINE
     Indication: TUBERCULOSIS
     Dosage: 150 MG, TID
  2. INEXIUM [Concomitant]
     Active Substance: ESOMEPRAZOLE
  3. DEXAMETASON [Concomitant]
     Active Substance: DEXAMETHASONE
     Dosage: 1 MG/ML, UNK
  4. IZILOX [Suspect]
     Active Substance: MOXIFLOXACIN HYDROCHLORIDE
     Indication: TUBERCULOSIS
     Dosage: 400 MG, QD
     Route: 048
     Dates: start: 20170407, end: 20171006
  5. CYCLOSERINE. [Suspect]
     Active Substance: CYCLOSERINE
     Indication: TUBERCULOSIS
     Dosage: 500 MG, QD
     Route: 048
     Dates: start: 20170407
  6. RIFADINE [Suspect]
     Active Substance: RIFAMPIN
     Indication: TUBERCULOSIS
     Dosage: 900 MG, QD
     Route: 048
     Dates: start: 20170407
  7. INEXIUM [Concomitant]
     Active Substance: ESOMEPRAZOLE
     Dosage: UNK
  8. SOLUPRED [PREDNISOLONE SODIUM SULFOBENZOATE] [Concomitant]
     Dosage: UNK
  9. CALCIDOSE VITAMINE D [Concomitant]
     Active Substance: CALCIUM\CHOLECALCIFEROL
     Dosage: UNK
  10. REMICADE [Concomitant]
     Active Substance: INFLIXIMAB
     Indication: UVEITIS
     Dosage: UNK
     Dates: start: 201703
  11. AMIKACINE [Concomitant]
     Active Substance: AMIKACIN
     Indication: TUBERCULOSIS
     Dosage: 500 MG, UNK
     Route: 041
  12. DIFFU K [Concomitant]
     Active Substance: POTASSIUM CHLORIDE
     Dosage: UNK
  13. AMIKACINE [Concomitant]
     Active Substance: AMIKACIN
     Indication: TUBERCULOSIS
     Dosage: 1 G, QD

REACTIONS (3)
  - Papilloedema [Recovered/Resolved]
  - Intracranial pressure increased [Recovered/Resolved]
  - Papilloedema [Not Recovered/Not Resolved]

NARRATIVE: CASE EVENT DATE: 201707
